FAERS Safety Report 13257040 (Version 4)
Quarter: 2017Q2

REPORT INFORMATION
  Report Type: Report from Study
  Country: US (occurrence: US)
  Receive Date: 20170221
  Receipt Date: 20170509
  Transmission Date: 20170830
  Serious: Yes (Other)
  Sender: FDA-Public Use
  Company Number: PHEH2017US004664

PATIENT
  Age: 32 Year
  Sex: Female
  Weight: 95.69 kg

DRUGS (1)
  1. GILENYA [Suspect]
     Active Substance: FINGOLIMOD HYDROCHLORIDE
     Indication: MULTIPLE SCLEROSIS
     Dosage: 0.5 MG, QD
     Route: 048
     Dates: start: 20131001, end: 20151101

REACTIONS (3)
  - Maternal exposure before pregnancy [Unknown]
  - Postpartum sepsis [Unknown]
  - Normal newborn [Unknown]

NARRATIVE: CASE EVENT DATE: 20160315
